FAERS Safety Report 9938034 (Version 1)
Quarter: 2014Q1

REPORT INFORMATION
  Report Type: Report from Study
  Country: US (occurrence: US)
  Receive Date: 20140303
  Receipt Date: 20140303
  Transmission Date: 20141002
  Serious: Yes (Other)
  Sender: FDA-Public Use
  Company Number: US-ROCHE-1343042

PATIENT
  Age: 55 Year
  Sex: Female

DRUGS (16)
  1. LUCENTIS [Suspect]
     Indication: CHOROIDAL NEOVASCULARISATION
     Route: 050
     Dates: start: 20110801
  2. LUCENTIS [Suspect]
     Indication: STARGARDT^S DISEASE
     Route: 050
     Dates: start: 20121022
  3. LUCENTIS [Suspect]
     Indication: RETINAL NEOVASCULARISATION
     Route: 050
     Dates: start: 20121203
  4. LUCENTIS [Suspect]
     Indication: RETINAL DYSTROPHY
     Route: 050
     Dates: start: 20120730
  5. LUCENTIS [Suspect]
     Route: 050
     Dates: start: 20110523
  6. LUCENTIS [Suspect]
     Route: 050
     Dates: start: 20130121
  7. LUCENTIS [Suspect]
     Route: 050
     Dates: start: 20120502
  8. LUCENTIS [Suspect]
     Route: 050
     Dates: start: 20110627
  9. LUCENTIS [Suspect]
     Route: 050
     Dates: start: 20111205
  10. LUCENTIS [Suspect]
     Route: 050
     Dates: start: 20120229
  11. LUCENTIS [Suspect]
     Route: 050
     Dates: start: 20120618
  12. LUCENTIS [Suspect]
     Route: 050
     Dates: start: 20130305
  13. LUCENTIS [Suspect]
     Route: 050
     Dates: start: 20120116
  14. LUCENTIS [Suspect]
     Route: 050
     Dates: start: 20120223
  15. LUCENTIS [Suspect]
     Route: 050
     Dates: start: 20120910
  16. AVASTIN [Suspect]
     Indication: PRODUCT USED FOR UNKNOWN INDICATION
     Route: 050

REACTIONS (10)
  - Macular oedema [Unknown]
  - Presumed ocular histoplasmosis syndrome [Unknown]
  - Visual impairment [Unknown]
  - Visual acuity reduced [Unknown]
  - Vision blurred [Unknown]
  - Retinal exudates [Unknown]
  - Off label use [Unknown]
  - Hypertension [Unknown]
  - Detachment of retinal pigment epithelium [Unknown]
  - Subretinal fluid [Unknown]
